FAERS Safety Report 9938249 (Version 1)
Quarter: 2014Q1

REPORT INFORMATION
  Report Type: Report from Study
  Country: US (occurrence: US)
  Receive Date: 20140303
  Receipt Date: 20140303
  Transmission Date: 20141002
  Serious: No
  Sender: FDA-Public Use
  Company Number: US-ABBVIE-13P-163-1031856-00

PATIENT
  Age: 50 Year
  Sex: Female

DRUGS (21)
  1. HUMIRA [Suspect]
     Indication: CROHN^S DISEASE
     Dates: start: 20120914, end: 20121215
  2. LOMOTIL [Concomitant]
     Indication: DIARRHOEA
     Dosage: GENERIC: 3 AT BEDTIME (REPORTED ON ADVERSE EVENT OF 28 NOV 2012)
  3. LYRICA [Concomitant]
     Indication: PAIN
     Dosage: 75 MG DAILY, AT BEDTIME
     Route: 048
  4. LYRICA [Concomitant]
     Indication: HEADACHE
  5. AMITRIPTYLINE [Concomitant]
     Indication: HEADACHE
     Dosage: 50 MG AT BEDTIME
     Route: 048
  6. ASA [Concomitant]
     Indication: PROPHYLAXIS
     Dosage: 81 MG DAILY
     Route: 048
  7. CALCIUM [Concomitant]
     Indication: OSTEOPOROSIS
     Dosage: 600 MG DAILY
     Route: 048
  8. POTASSIUM [Concomitant]
     Indication: MUSCLE SPASMS
     Dosage: 99 MG DAILY
     Route: 048
  9. VITAMIN B12 [Concomitant]
     Indication: ASTHENIA
     Dosage: 100 MCG DAILY
     Route: 048
  10. VITAMIN D [Concomitant]
     Indication: VITAMIN D DECREASED
     Route: 048
  11. TRAMADOL [Concomitant]
     Indication: PAIN
     Dosage: 1-2 PILLS, AS NEEDED
  12. TRAMADOL [Concomitant]
     Indication: HEADACHE
  13. CLONIDINE [Concomitant]
     Indication: HYPERTENSION
     Route: 048
  14. REQUIP [Concomitant]
     Indication: MUSCLE SPASMS
     Dosage: 1 MG DAILY, AT BEDTIME
     Route: 048
  15. ESTRADIOL [Concomitant]
     Indication: HORMONE REPLACEMENT THERAPY
     Dosage: 2 MG DAILY
     Route: 048
  16. RANITIDINE HCL [Concomitant]
     Indication: GASTROOESOPHAGEAL REFLUX DISEASE
     Route: 048
  17. OMEPRAZOLE [Concomitant]
     Indication: GASTROOESOPHAGEAL REFLUX DISEASE
     Dosage: 20 MG DAILY
     Route: 048
  18. DICYCLOMINE HCL [Concomitant]
     Indication: GASTROINTESTINAL DISORDER
     Dosage: 40 MG (200 MG IN AM AND 10 MG IN PM) ANTI-SPASM
  19. CELEXA [Concomitant]
     Indication: DEPRESSION
     Dosage: 20 MG AT BEDTIME
     Route: 048
  20. CARVEDILOL [Concomitant]
     Indication: HYPERTENSION
     Route: 048
  21. METHOCARBAMOL [Concomitant]
     Indication: MUSCLE RELAXANT THERAPY
     Route: 048

REACTIONS (1)
  - Rash [Recovered/Resolved]
